FAERS Safety Report 8275078-8 (Version None)
Quarter: 2012Q2

REPORT INFORMATION
  Report Type: 
  Country: None (occurrence: None)
  Receive Date: 20120411
  Receipt Date: 20120329
  Transmission Date: 20120825
  Serious: Yes (Hospitalization, Other)
  Sender: FDA-Public Use
  Company Number: FR-CELGENEUS-056-21880-12033570

PATIENT
  Sex: Male

DRUGS (3)
  1. BORTEZOMIB [Suspect]
     Route: 065
     Dates: start: 20111220
  2. REVLIMID [Suspect]
     Route: 048
     Dates: start: 20111220
  3. DEXAMETHASONE [Suspect]
     Dates: start: 20111220

REACTIONS (1)
  - INFECTIOUS PERITONITIS [None]
